FAERS Safety Report 9373461 (Version 1)
Quarter: 2013Q2

REPORT INFORMATION
  Report Type: Spontaneous
  Country: FR (occurrence: FR)
  Receive Date: 20130627
  Receipt Date: 20130627
  Transmission Date: 20140414
  Serious: Yes (Hospitalization)
  Sender: FDA-Public Use
  Company Number: FR-TEVA-415395ISR

PATIENT
  Age: 82 Year
  Sex: Female

DRUGS (9)
  1. FUROSEMIDE TEVA 40 MG [Suspect]
     Dosage: 120 MILLIGRAM DAILY; FROM A LONG TIME: AT LEAST 3 MONTHS
     Route: 048
  2. VERAPAMIL 240 MG [Concomitant]
     Dosage: HALF A TABLET DAILY
  3. PERINDOPRIL [Concomitant]
     Dosage: 4 MILLIGRAM DAILY;
  4. IDEOS [Concomitant]
  5. ESOMEPRAZOLE [Concomitant]
  6. SEROPLEX [Concomitant]
  7. HALOPERIDOL [Concomitant]
  8. DOLIPRANE [Concomitant]
  9. FLECTOR [Concomitant]

REACTIONS (4)
  - Fall [Unknown]
  - Joint dislocation [Unknown]
  - Pulmonary oedema [Unknown]
  - Cardiac failure [Unknown]
